FAERS Safety Report 7059896-X (Version None)
Quarter: 2010Q4

REPORT INFORMATION
  Report Type: 
  Country: None (occurrence: None)
  Receive Date: 20101025
  Receipt Date: 20101019
  Transmission Date: 20110411
  Serious: Yes (Life-Threatening, Hospitalization)
  Sender: FDA-Public Use
  Company Number: PHHY2010ES69840

PATIENT
  Age: 58 Year
  Sex: Male

DRUGS (2)
  1. VOLTAREN [Suspect]
     Dosage: 100 MG DAILY
     Route: 048
     Dates: start: 20100409, end: 20100426
  2. IBUPROFEN [Interacting]
     Dosage: 1.8 G DAILY
     Route: 048
     Dates: start: 20100415, end: 20100426

REACTIONS (3)
  - DRUG INTERACTION [None]
  - GASTRIC ULCER [None]
  - UPPER GASTROINTESTINAL HAEMORRHAGE [None]
